FAERS Safety Report 6454748-8 (Version None)
Quarter: 2009Q4

REPORT INFORMATION
  Report Type: 
  Country: None (occurrence: None)
  Receive Date: 20091124
  Receipt Date: 20091116
  Transmission Date: 20100525
  Serious: Yes (Hospitalization)
  Sender: FDA-Public Use
  Company Number: US-WATSON-2009-09870

PATIENT
  Age: 48 Year
  Sex: Male

DRUGS (2)
  1. CLARITHROMYCIN [Suspect]
     Indication: PNEUMONIA
     Dosage: 500 MG, BID
     Route: 048
  2. COLCHICINE (WATSON LABORATORIES) [Suspect]
     Indication: GOUT
     Dosage: 0.6 MG, DAILY
     Route: 048

REACTIONS (2)
  - INHIBITORY DRUG INTERACTION [None]
  - RHABDOMYOLYSIS [None]
